FAERS Safety Report 7730043-1 (Version None)
Quarter: 2011Q3

REPORT INFORMATION
  Report Type: 
  Country: None (occurrence: None)
  Receive Date: 20110906
  Receipt Date: 20110829
  Transmission Date: 20111222
  Serious: Yes (Death)
  Sender: FDA-Public Use
  Company Number: NO-ROCHE-799860

PATIENT
  Sex: Female

DRUGS (1)
  1. XELODA [Suspect]
     Indication: RECTAL CANCER
     Route: 048
     Dates: start: 20110622, end: 20110708

REACTIONS (7)
  - NEUTROPENIC COLITIS [None]
  - THROMBOCYTOPENIA [None]
  - GASTROENTERITIS RADIATION [None]
  - AGRANULOCYTOSIS [None]
  - FEBRILE NEUTROPENIA [None]
  - NEUTROPENIC SEPSIS [None]
  - LARGE INTESTINE PERFORATION [None]
